FAERS Safety Report 5625252-1 (Version None)
Quarter: 2008Q1

REPORT INFORMATION
  Report Type: 
  Country: None (occurrence: None)
  Receive Date: 20080213
  Receipt Date: 20080211
  Transmission Date: 20080703
  Serious: Yes (Hospitalization)
  Sender: FDA-Public Use
  Company Number: NO-MERCK-0802NOR00015

PATIENT
  Age: 69 Year
  Sex: Female

DRUGS (6)
  1. HYZAAR [Suspect]
     Indication: HYPERTENSION
     Route: 048
  2. CARVEDILOL [Concomitant]
     Indication: HYPERTENSION
     Route: 048
  3. ESCITALOPRAM OXALATE [Suspect]
     Indication: DEPRESSION
     Route: 048
  4. SIMVASTATIN [Concomitant]
     Indication: PROPHYLAXIS
     Route: 048
  5. LERCANIDIPINE HYDROCHLORIDE [Concomitant]
     Indication: HYPERTENSION
     Route: 048
  6. ASPIRIN AND MAGNESIUM OXIDE [Concomitant]
     Indication: PROPHYLAXIS
     Route: 048

REACTIONS (4)
  - ANKLE FRACTURE [None]
  - CONFUSIONAL STATE [None]
  - DRUG INTERACTION [None]
  - HYPONATRAEMIA [None]
